FAERS Safety Report 8608318-3 (Version None)
Quarter: 2012Q3

REPORT INFORMATION
  Report Type: 
  Country: None (occurrence: None)
  Receive Date: 20120821
  Receipt Date: 20120814
  Transmission Date: 20120928
  Serious: Yes (Hospitalization)
  Sender: FDA-Public Use
  Company Number: IT-JNJFOC-20120807955

PATIENT
  Sex: Male

DRUGS (4)
  1. TPN [Concomitant]
     Indication: MALABSORPTION
     Dosage: IRON, ZINC, MAGNESIUM, CALCIUM
     Route: 065
  2. IBUPROFEN [Suspect]
     Indication: BACK PAIN
     Route: 048
     Dates: start: 20120721, end: 20120728
  3. SCOPOLAMINE [Suspect]
     Indication: ABDOMINAL PAIN
     Route: 030
     Dates: start: 20120721, end: 20120728
  4. COUMADIN [Suspect]
     Indication: FACTOR V LEIDEN MUTATION
     Route: 048
     Dates: start: 20080101, end: 20120728

REACTIONS (4)
  - RECTAL HAEMORRHAGE [None]
  - ANAEMIA [None]
  - DUODENAL ULCER [None]
  - HAEMATURIA [None]
